FAERS Safety Report 7284807 (Version 7)
Quarter: 2014Q3

REPORT INFORMATION
  Report Type: Spontaneous
  Country: US (occurrence: US)
  Receive Date: 20091201
  Receipt Date: 20140826
  Transmission Date: 20150326
  Serious: Yes (Hospitalization, Other)
  Sender: FDA-Public Use
  Company Number: US-009507513-2009-200466-NL

PATIENT
  Sex: Female
  Weight: 143.79 kg

DRUGS (1)
  1. NUVARING [Suspect]
     Active Substance: ETHINYL ESTRADIOL\ETONOGESTREL
     Dosage: CONTINUING: NO
     Dates: start: 20070601, end: 200710

REACTIONS (11)
  - Haematuria [Unknown]
  - Pulmonary embolism [Unknown]
  - Intentional overdose [Unknown]
  - Nausea [Unknown]
  - Analgesic drug level increased [Unknown]
  - Suicidal ideation [Unknown]
  - Blood alcohol increased [Unknown]
  - Thyroid disorder [Unknown]
  - Suicidal behaviour [Unknown]
  - Adjustment disorder [Unknown]
  - Haemoptysis [Unknown]

NARRATIVE: CASE EVENT DATE: 20071030
